FAERS Safety Report 21885012 (Version 2)
Quarter: 2023Q1

REPORT INFORMATION
  Report Type: Spontaneous
  Country: US (occurrence: US)
  Receive Date: 20230119
  Receipt Date: 20230210
  Transmission Date: 20230418
  Serious: Yes (Other)
  Sender: FDA-Public Use
  Company Number: US-TEVA-2023-US-2845882

PATIENT
  Age: 63 Year
  Sex: Female

DRUGS (6)
  1. HALOPERIDOL [Suspect]
     Active Substance: HALOPERIDOL
     Indication: Schizophrenia
     Dosage: 10 MILLIGRAM DAILY; ONCE A DAY
     Route: 065
  2. HALOPERIDOL [Suspect]
     Active Substance: HALOPERIDOL
     Dosage: DOSE DECREASED
     Route: 065
  3. BENZTROPINE [Suspect]
     Active Substance: BENZTROPINE
     Indication: Prophylaxis
     Dosage: 2 MILLIGRAM DAILY; 1MG TWICE DAILY , ADDITIONAL INFO: MISUSE,OFF LABEL USE
     Route: 065
  4. BENZTROPINE [Suspect]
     Active Substance: BENZTROPINE
     Indication: Extrapyramidal disorder
  5. ZIPRASIDONE [Suspect]
     Active Substance: ZIPRASIDONE
     Indication: Schizophrenia
     Dosage: 80 MILLIGRAM DAILY; 40MG TWICE DAILY
     Route: 065
  6. ZIPRASIDONE [Suspect]
     Active Substance: ZIPRASIDONE
     Dosage: DOSE DECREASED
     Route: 065

REACTIONS (4)
  - Cognitive disorder [Recovering/Resolving]
  - Intentional product misuse [Unknown]
  - Rebound effect [Unknown]
  - Off label use [Unknown]
